FAERS Safety Report 12202774 (Version 5)
Quarter: 2018Q2

REPORT INFORMATION
  Report Type: Report from Study
  Country: CA (occurrence: CA)
  Receive Date: 20160322
  Receipt Date: 20180518
  Transmission Date: 20180711
  Serious: Yes (Other)
  Sender: FDA-Public Use
  Company Number: CA-TAKEDA-2015TUS013644

PATIENT
  Age: 37 Year
  Sex: Male

DRUGS (6)
  1. VEDOLIZUMAB [Suspect]
     Active Substance: VEDOLIZUMAB
     Dosage: 300 MG, UNK
     Route: 042
     Dates: start: 20170822
  2. PREDNISONE. [Concomitant]
     Active Substance: PREDNISONE
     Dosage: 200 MG, Q2WEEKS
  3. VEDOLIZUMAB [Suspect]
     Active Substance: VEDOLIZUMAB
     Indication: COLITIS ULCERATIVE
     Dosage: 300 MG, UNK
     Route: 042
     Dates: start: 20150901, end: 20160421
  4. VEDOLIZUMAB [Suspect]
     Active Substance: VEDOLIZUMAB
     Dosage: 300 MG, Q4WEEKS
     Route: 042
     Dates: start: 20171027
  5. IRON [Concomitant]
     Active Substance: IRON
     Dosage: UNK
  6. VEDOLIZUMAB [Suspect]
     Active Substance: VEDOLIZUMAB
     Dosage: 300 MG, Q4WEEKS
     Route: 042
     Dates: start: 20160526

REACTIONS (15)
  - Cough [Unknown]
  - Asthenia [Unknown]
  - Influenza [Recovered/Resolved]
  - Pancreatitis [Unknown]
  - Arthritis [Unknown]
  - Eye discharge [Unknown]
  - Pain in extremity [Unknown]
  - Off label use [Unknown]
  - Pain in jaw [Unknown]
  - Oedema peripheral [Unknown]
  - Dry throat [Unknown]
  - Acne cystic [Recovering/Resolving]
  - Erythema of eyelid [Unknown]
  - Dry eye [Unknown]
  - Arthralgia [Recovered/Resolved]

NARRATIVE: CASE EVENT DATE: 2015
